FAERS Safety Report 6522317-7 (Version None)
Quarter: 2009Q4

REPORT INFORMATION
  Report Type: 
  Country: None (occurrence: None)
  Receive Date: 20091230
  Receipt Date: 20091222
  Transmission Date: 20100525
  Serious: Yes (Other)
  Sender: FDA-Public Use
  Company Number: B0614221A

PATIENT
  Age: 15 Year
  Sex: Female

DRUGS (1)
  1. RELENZA [Suspect]
     Indication: INFLUENZA
     Dosage: 10MG TWICE PER DAY
     Route: 055
     Dates: start: 20091122

REACTIONS (4)
  - DYSSTASIA [None]
  - HALLUCINATION [None]
  - HYPOAESTHESIA [None]
  - MALAISE [None]
